FAERS Safety Report 9139305 (Version 1)
Quarter: 2013Q1

REPORT INFORMATION
  Report Type: Spontaneous
  Country: US (occurrence: US)
  Receive Date: 20130305
  Receipt Date: 20130305
  Transmission Date: 20140127
  Serious: Yes (Hospitalization)
  Sender: FDA-Public Use
  Company Number: PHEH2013US005124

PATIENT
  Sex: 0

DRUGS (2)
  1. AFINITOR [Suspect]
     Indication: BREAST CANCER
     Dosage: 1 DF, UNK
     Route: 048
  2. EXEMESTANE [Suspect]
     Indication: BREAST CANCER
     Dosage: 1 DF, UNK

REACTIONS (3)
  - Arrhythmia [Unknown]
  - Palpitations [Unknown]
  - Dyspnoea [Unknown]
